FAERS Safety Report 19441085 (Version 3)
Quarter: 2021Q3

REPORT INFORMATION
  Report Type: Spontaneous
  Country: ES (occurrence: ES)
  Receive Date: 20210621
  Receipt Date: 20210915
  Transmission Date: 20211014
  Serious: Yes (Other)
  Sender: FDA-Public Use
  Company Number: ES-REGENERON PHARMACEUTICALS, INC.-2021-61415

PATIENT

DRUGS (9)
  1. EYLEA [Suspect]
     Active Substance: AFLIBERCEPT
     Dosage: UNK, BI?MONTHLY; RIGHT EYE
     Route: 031
  2. EYLEA [Suspect]
     Active Substance: AFLIBERCEPT
     Indication: PRODUCT USED FOR UNKNOWN INDICATION
     Dosage: UNK, Q1MON; 3 DOSES IN TOTAL IN LEFT EYE
     Route: 031
  3. EYLEA [Suspect]
     Active Substance: AFLIBERCEPT
     Dosage: 1 DF, ONCE
     Route: 031
     Dates: start: 202003, end: 202003
  4. EYLEA [Suspect]
     Active Substance: AFLIBERCEPT
     Dosage: UNK; LOADING DOSE; Q1MON; 5 INJECTIONS OF AFLIBERCEPT
     Route: 031
  5. EYLEA [Suspect]
     Active Substance: AFLIBERCEPT
     Dosage: UNK, BI?MONTHLY; RIGHT EYE
     Route: 031
  6. EYLEA [Suspect]
     Active Substance: AFLIBERCEPT
     Dosage: UNK, Q6WK; RIGHT EYE
     Route: 031
     Dates: start: 202012
  7. EYLEA [Suspect]
     Active Substance: AFLIBERCEPT
     Dosage: UNK; LOADING DOSE; Q1MON; 5 INJECTIONS OF AFLIBERCEPT
     Route: 031
  8. EYLEA [Suspect]
     Active Substance: AFLIBERCEPT
     Dosage: 1 DF, ONCE
     Route: 031
     Dates: start: 202004, end: 202004
  9. EYLEA [Suspect]
     Active Substance: AFLIBERCEPT
     Dosage: UNK, Q1MON; 3 DOSES IN TOTAL IN LEFT EYE
     Route: 031

REACTIONS (8)
  - Cystoid macular oedema [Recovering/Resolving]
  - Macular oedema [Unknown]
  - Macular oedema [Unknown]
  - Hypercholesterolaemia [Unknown]
  - Drug ineffective [Unknown]
  - Macular cyst [Recovering/Resolving]
  - Macular oedema [Unknown]
  - Visual acuity reduced [Unknown]

NARRATIVE: CASE EVENT DATE: 2019
